FAERS Safety Report 23870421 (Version 2)
Quarter: 2024Q2

REPORT INFORMATION
  Report Type: Spontaneous
  Country: AU (occurrence: AU)
  Receive Date: 20240518
  Receipt Date: 20240605
  Transmission Date: 20240716
  Serious: Yes (Hospitalization)
  Sender: FDA-Public Use
  Company Number: AU-SANDOZ-SDZ2024AU024387

PATIENT
  Age: 76 Year
  Sex: Male
  Weight: 85 kg

DRUGS (2)
  1. METOPROLOL [Suspect]
     Active Substance: METOPROLOL
     Dosage: 25 MG
     Route: 048
     Dates: start: 20231106
  2. METOPROLOL [Suspect]
     Active Substance: METOPROLOL
     Indication: Product used for unknown indication
     Dosage: 50 MG (100TAB AU (X1 UNIT))
     Route: 065

REACTIONS (9)
  - Hypoaesthesia [Unknown]
  - Supraventricular tachycardia [Unknown]
  - Mobility decreased [Unknown]
  - Peripheral coldness [Unknown]
  - Weight decreased [Unknown]
  - Feeding disorder [Unknown]
  - Depression [Unknown]
  - Rash [Unknown]
  - Loss of personal independence in daily activities [Unknown]

NARRATIVE: CASE EVENT DATE: 20231101
